FAERS Safety Report 5230533-X (Version None)
Quarter: 2007Q1

REPORT INFORMATION
  Report Type: 
  Country: None (occurrence: None)
  Receive Date: 20070206
  Receipt Date: 20070201
  Transmission Date: 20070707
  Serious: Yes (Hospitalization)
  Sender: FDA-Public Use
  Company Number: US-GLAXOSMITHKLINE-A0638188A

PATIENT
  Age: 82 Year
  Sex: Male
  Weight: 89.1 kg

DRUGS (21)
  1. ROSIGLITAZONE [Suspect]
     Dosage: 4MG PER DAY
     Route: 048
     Dates: start: 20010326
  2. GLIMEPIRIDE [Suspect]
     Dosage: 4MG TWICE PER DAY
     Route: 048
     Dates: start: 20010531
  3. LANTUS [Suspect]
     Dosage: 17UNIT PER DAY
     Dates: start: 20030411
  4. INSULIN ASPART [Suspect]
     Dates: start: 20030710
  5. OMEPRAZOLE [Concomitant]
     Dosage: 20MG PER DAY
  6. TAMSULOSIN HCL [Concomitant]
     Dosage: .4MG PER DAY
  7. FINASTERIDE [Concomitant]
     Dosage: 5MG PER DAY
  8. FLUNISOLIDE [Concomitant]
  9. NITROGLYCERIN [Concomitant]
  10. QUININE SULFATE [Concomitant]
     Dosage: 260MG PER DAY
  11. LEVOTHYROXINE SODIUM [Concomitant]
     Dosage: .025MG PER DAY
  12. POTASSIUM CHLORIDE [Concomitant]
     Dosage: 8MEQ PER DAY
  13. LASIX [Concomitant]
     Dosage: 40MG TWICE PER DAY
  14. SIMVASTATIN [Concomitant]
     Dosage: 80MG PER DAY
  15. LEVALBUTEROL HCL [Concomitant]
  16. METOPROLOL TARTRATE [Concomitant]
     Dosage: 50MG TWICE PER DAY
  17. ASPIRIN [Concomitant]
     Dosage: 325MG PER DAY
  18. GABAPENTIN [Concomitant]
     Dosage: 900MG THREE TIMES PER DAY
  19. OXYCODONE + ACETAMINOPHEN [Concomitant]
  20. GLUCOSAMINE + CHONDROITIN [Concomitant]
  21. METAMUCIL [Concomitant]
     Dosage: 3TAB PER DAY

REACTIONS (8)
  - CARDIAC FAILURE CONGESTIVE [None]
  - COUGH [None]
  - DYSPNOEA [None]
  - HYPOGLYCAEMIA [None]
  - HYPOXIA [None]
  - OEDEMA PERIPHERAL [None]
  - PITTING OEDEMA [None]
  - WAIST CIRCUMFERENCE INCREASED [None]
